FAERS Safety Report 4598110-1 (Version None)
Quarter: 2005Q1

REPORT INFORMATION
  Report Type: 
  Country: None (occurrence: None)
  Receive Date: 20050301
  Receipt Date: 20050301
  Transmission Date: 20050727
  Serious: Yes (Other)
  Sender: FDA-Public Use
  Company Number: None

PATIENT
  Age: 41 Year
  Sex: Female

DRUGS (1)
  1. GLYBURIDE / METFORMIN 2.5/500 BMS (PAR) [Suspect]
     Indication: DIABETES MELLITUS
     Dosage: ONE TABLET TWICE A DAY BY MOUTH
     Route: 048
     Dates: start: 20040501, end: 20050201

REACTIONS (2)
  - BLOOD GLUCOSE INCREASED [None]
  - PHARMACEUTICAL PRODUCT COMPLAINT [None]
